FAERS Safety Report 13569520 (Version 1)
Quarter: 2017Q2

REPORT INFORMATION
  Report Type: Spontaneous
  Country: FR (occurrence: FR)
  Receive Date: 20170522
  Receipt Date: 20170522
  Transmission Date: 20170830
  Serious: Yes (Hospitalization, Other)
  Sender: FDA-Public Use
  Company Number: FR-ELI_LILLY_AND_COMPANY-FR201705001006

PATIENT
  Age: 74 Year
  Sex: Male

DRUGS (1)
  1. GEMZAR [Suspect]
     Active Substance: GEMCITABINE HYDROCHLORIDE
     Indication: LUNG SQUAMOUS CELL CARCINOMA STAGE IV
     Dosage: UNK, CYCLICAL
     Route: 042
     Dates: end: 20170315

REACTIONS (9)
  - Pulmonary embolism [Unknown]
  - Oedema [Unknown]
  - Thrombocytopenia [Unknown]
  - Acute kidney injury [Not Recovered/Not Resolved]
  - Acute respiratory failure [Unknown]
  - Deep vein thrombosis [Unknown]
  - Malignant neoplasm progression [Unknown]
  - Anaemia [Unknown]
  - Lung disorder [Unknown]

NARRATIVE: CASE EVENT DATE: 20170320
